FAERS Safety Report 8850841 (Version 2)
Quarter: 2012Q4

REPORT INFORMATION
  Report Type: 
  Country: FR (occurrence: FR)
  Receive Date: 20121019
  Receipt Date: 20121109
  Transmission Date: 20130627
  Serious: Yes (Hospitalization)
  Sender: FDA-Public Use
  Company Number: PHHY2012FR093192

PATIENT
  Age: 49 Year
  Sex: Female

DRUGS (5)
  1. COTAREG [Suspect]
     Route: 048
  2. ALDACTONE [Suspect]
  3. LERCAN [Concomitant]
  4. EUPRESSYL [Concomitant]
  5. CERAZETTE [Concomitant]

REACTIONS (6)
  - Interstitial lung disease [Recovered/Resolved]
  - Lung disorder [Unknown]
  - Toxic skin eruption [Recovered/Resolved]
  - Cutaneous lupus erythematosus [Recovered/Resolved]
  - Skin lesion [Recovering/Resolving]
  - Skin disorder [Unknown]
